FAERS Safety Report 5976034-2 (Version None)
Quarter: 2008Q4

REPORT INFORMATION
  Report Type: 
  Country: None (occurrence: None)
  Receive Date: 20081202
  Receipt Date: 20081121
  Transmission Date: 20090506
  Serious: Yes (Hospitalization)
  Sender: FDA-Public Use
  Company Number: GB-ROCHE-596556

PATIENT
  Sex: Female
  Weight: 103 kg

DRUGS (5)
  1. ORLISTAT [Suspect]
     Indication: OBESITY
     Route: 048
     Dates: start: 20080516, end: 20081006
  2. ORLISTAT [Suspect]
     Route: 048
     Dates: start: 20081020
  3. CITALOPRAM HYDROBROMIDE [Concomitant]
     Route: 048
  4. METFORMIN HCL [Concomitant]
     Route: 048
  5. HUMALOG [Concomitant]
     Dosage: REPORTED AS HUMAN LOG INSULIN
     Route: 058

REACTIONS (5)
  - BLOOD GLUCOSE INCREASED [None]
  - CHEST DISCOMFORT [None]
  - COUGH [None]
  - KETOACIDOSIS [None]
  - NASOPHARYNGITIS [None]
